FAERS Safety Report 6163428-8 (Version None)
Quarter: 2009Q1

REPORT INFORMATION
  Report Type: 
  Country: None (occurrence: None)
  Receive Date: 20090313
  Receipt Date: 20081120
  Transmission Date: 20090719
  Serious: Yes (Other)
  Sender: FDA-Public Use
  Company Number: AE08-007

PATIENT

DRUGS (1)
  1. ALLERGENIC EXTRACT [Suspect]
     Indication: FOOD ALLERGY
     Dosage: SKIN TEST
     Dates: start: 20060801, end: 20081101

REACTIONS (1)
  - UNEVALUABLE EVENT [None]
